FAERS Safety Report 6121232-0 (Version None)
Quarter: 2009Q1

REPORT INFORMATION
  Report Type: 
  Country: None (occurrence: None)
  Receive Date: 20090312
  Receipt Date: 20090224
  Transmission Date: 20090719
  Serious: Yes (Hospitalization)
  Sender: FDA-Public Use
  Company Number: 8043457

PATIENT
  Age: 79 Year
  Sex: Male

DRUGS (2)
  1. KEPPRA [Suspect]
     Indication: EPILEPSY
     Dosage: 1.5 G 2/D;
  2. KEPPRA [Suspect]
     Indication: EPILEPSY

REACTIONS (2)
  - CONDITION AGGRAVATED [None]
  - CONVULSION [None]
